FAERS Safety Report 9353023 (Version 1)
Quarter: 2013Q2

REPORT INFORMATION
  Report Type: Spontaneous
  Country: US (occurrence: None)
  Receive Date: 20130617
  Receipt Date: 20130617
  Transmission Date: 20140414
  Serious: Yes (Death)
  Sender: FDA-Public Use
  Company Number: None

PATIENT
  Age: 67 Year
  Sex: Female
  Weight: 69.9 kg

DRUGS (4)
  1. TEMSIROLIMUS [Suspect]
     Indication: B-CELL LYMPHOMA
     Dosage: 25MG, WEEKLY, IV
     Route: 042
     Dates: start: 20130508, end: 20130529
  2. BORTEZOMIB [Suspect]
     Indication: B-CELL LYMPHOMA
     Dosage: 6MG/M^2, WEEKLY, IV
     Route: 042
     Dates: start: 20130508, end: 20130529
  3. ACYCLOVIR [Concomitant]
  4. LOVENOX [Concomitant]

REACTIONS (2)
  - B-cell lymphoma [None]
  - Malignant neoplasm progression [None]
